FAERS Safety Report 16460816 (Version 4)
Quarter: 2019Q3

REPORT INFORMATION
  Report Type: Report from Study
  Country: US (occurrence: US)
  Receive Date: 20190620
  Receipt Date: 20190819
  Transmission Date: 20191004
  Serious: Yes (Other)
  Sender: FDA-Public Use
  Company Number: US-JNJFOC-20190617710

PATIENT
  Age: 82 Year
  Sex: Female
  Weight: 49 kg

DRUGS (4)
  1. IMBRUVICA [Suspect]
     Active Substance: IBRUTINIB
     Dosage: 420 MG, QD
     Route: 065
  2. IMBRUVICA [Suspect]
     Active Substance: IBRUTINIB
     Dosage: 420 MG, QD
     Route: 065
     Dates: start: 20190605
  3. IMBRUVICA [Suspect]
     Active Substance: IBRUTINIB
     Indication: LYMPHOCYTIC LEUKAEMIA
     Dosage: 140 MG, QD
     Route: 048
     Dates: start: 20190606
  4. IMBRUVICA [Suspect]
     Active Substance: IBRUTINIB
     Dosage: 280 MG, QD
     Route: 065

REACTIONS (14)
  - Ascites [Unknown]
  - Gastrooesophageal reflux disease [Recovered/Resolved]
  - Oedema peripheral [Unknown]
  - Oesophageal spasm [Recovered/Resolved]
  - Autoimmune haemolytic anaemia [Recovering/Resolving]
  - Fatigue [Unknown]
  - Diarrhoea [Unknown]
  - Contracted bladder [Unknown]
  - Feeling abnormal [Unknown]
  - Peripheral swelling [Not Recovered/Not Resolved]
  - Disease progression [Unknown]
  - Off label use [Unknown]
  - Product use issue [Unknown]
  - Lymphadenopathy [Unknown]

NARRATIVE: CASE EVENT DATE: 20190606
